FAERS Safety Report 7423632-5 (Version None)
Quarter: 2011Q2

REPORT INFORMATION
  Report Type: 
  Country: None (occurrence: None)
  Receive Date: 20110413
  Receipt Date: 20110413
  Transmission Date: 20111010
  Serious: Yes (Hospitalization)
  Sender: FDA-Public Use
  Company Number: None

PATIENT
  Age: 81 Year
  Sex: Female
  Weight: 78 kg

DRUGS (23)
  1. PRILOSEC [Concomitant]
  2. ZETIA [Concomitant]
  3. SYNTHROID [Concomitant]
  4. COREG [Concomitant]
  5. ULTRAM [Concomitant]
  6. BISACODYL [Concomitant]
  7. CYMBALTA [Concomitant]
  8. LYRICA [Concomitant]
  9. ACETAMINOPHEN [Concomitant]
  10. COUMADIN [Suspect]
     Indication: DEEP VEIN THROMBOSIS
     Dosage: 6MG QHS PO RECENT
     Route: 048
  11. VIT D [Concomitant]
  12. ARTIFICIAL TEARS [Concomitant]
  13. AGGRENOX [Suspect]
     Indication: CEREBROVASCULAR ACCIDENT
     Dosage: 1 CAPSULE BID PO RECENT
     Route: 048
  14. NORVASC [Concomitant]
  15. ZOCOR [Concomitant]
  16. SENNA [Concomitant]
  17. REGLAN [Concomitant]
  18. ROBAXIN [Concomitant]
  19. ANUSOL [Concomitant]
  20. MDM [Concomitant]
  21. ZOFRAN [Concomitant]
  22. LOVENOX [Suspect]
     Indication: DEEP VEIN THROMBOSIS
     Dosage: 70MG Q12 HR PO RECENT
     Route: 048
  23. MAALOX [Concomitant]

REACTIONS (6)
  - ANAEMIA [None]
  - RENAL FAILURE ACUTE [None]
  - INTERNATIONAL NORMALISED RATIO INCREASED [None]
  - COAGULOPATHY [None]
  - GASTRIC ULCER [None]
  - HYPERKALAEMIA [None]
